FAERS Safety Report 22055733 (Version 1)
Quarter: 2023Q1

REPORT INFORMATION
  Report Type: Spontaneous
  Country: US (occurrence: None)
  Receive Date: 20230302
  Receipt Date: 20230302
  Transmission Date: 20230417
  Serious: Yes (Hospitalization)
  Sender: FDA-Public Use
  Company Number: None

PATIENT
  Sex: Female

DRUGS (16)
  1. HUMIRA [Suspect]
     Active Substance: ADALIMUMAB
     Indication: Vitamin D deficiency
     Dosage: 40 MG/0.4ML  SUBCUTANEOUS??INJECT 40 MG UNDER THE SKIN EVERY 7 DAYS?
     Route: 058
     Dates: start: 20220323
  2. HUMIRA [Suspect]
     Active Substance: ADALIMUMAB
     Dosage: FREQUENCY : WEEKLY;?
     Route: 058
  3. ABILIFY [Concomitant]
     Active Substance: ARIPIPRAZOLE
  4. ALBUTEROL AER HFA [Concomitant]
  5. APIDRA [Concomitant]
  6. KLONOPIN [Concomitant]
  7. LAMICTAL [Concomitant]
     Active Substance: LAMOTRIGINE
  8. LANTUS SOLOS [Concomitant]
  9. LIPITOR [Concomitant]
     Active Substance: ATORVASTATIN CALCIUM
  10. LISINOPRIL [Concomitant]
     Active Substance: LISINOPRIL
  11. PEPCID AC [Concomitant]
     Active Substance: FAMOTIDINE
  12. PROTONIX [Concomitant]
     Active Substance: PANTOPRAZOLE SODIUM
  13. TRAZODONE [Concomitant]
     Active Substance: TRAZODONE HYDROCHLORIDE
  14. VITAMIN D [Concomitant]
     Active Substance: VITAMIN D NOS
  15. ZOLOFT [Concomitant]
     Active Substance: SERTRALINE HYDROCHLORIDE
  16. ZYRTEC [Concomitant]
     Active Substance: CETIRIZINE HYDROCHLORIDE

REACTIONS (2)
  - Therapy interrupted [None]
  - Hospitalisation [None]
